FAERS Safety Report 21022709 (Version 1)
Quarter: 2022Q2

REPORT INFORMATION
  Report Type: Spontaneous
  Country: JP (occurrence: JP)
  Receive Date: 20220629
  Receipt Date: 20220629
  Transmission Date: 20220721
  Serious: Yes (Other)
  Sender: FDA-Public Use
  Company Number: JP-BAYER-2022A089496

PATIENT
  Age: 78 Year
  Sex: Male

DRUGS (2)
  1. NEXAVAR [Suspect]
     Active Substance: SORAFENIB
     Indication: Papillary thyroid cancer
     Dosage: DAILY DOSE 600 MG
  2. NEXAVAR [Suspect]
     Active Substance: SORAFENIB
     Indication: Papillary thyroid cancer
     Dosage: DAILY DOSE 400 MG

REACTIONS (4)
  - Metastases to lung [None]
  - Palmar-plantar erythrodysaesthesia syndrome [None]
  - Malaise [None]
  - Hypertension [None]
